FAERS Safety Report 21916944 (Version 1)
Quarter: 2023Q1

REPORT INFORMATION
  Report Type: Report from Study
  Country: DE (occurrence: DE)
  Receive Date: 20230126
  Receipt Date: 20230126
  Transmission Date: 20230417
  Serious: Yes (Hospitalization)
  Sender: FDA-Public Use
  Company Number: DE-UKU-20230327-000

PATIENT
  Age: 65 Year
  Sex: Female
  Weight: 83 kg

DRUGS (9)
  1. COPANLISIB [Suspect]
     Active Substance: COPANLISIB
     Indication: Marginal zone lymphoma
     Dosage: X 45 MILLIGRAM IN CYCLICAL
     Route: 042
     Dates: start: 20220325
  2. RITUXIMAB [Suspect]
     Active Substance: RITUXIMAB
     Indication: Marginal zone lymphoma
     Dosage: X 375 MILLIGRAM/M? IN CYCLICAL
     Route: 042
     Dates: start: 20220326
  3. LEVOTHYROXINE [Concomitant]
     Active Substance: LEVOTHYROXINE
     Indication: Autoimmune thyroiditis
     Dosage: 125 MG, QD
     Route: 048
     Dates: start: 2012
  4. MIRTAZAPINE [Concomitant]
     Active Substance: MIRTAZAPINE
     Indication: Depression
     Dosage: 15 MG, QD
     Route: 048
     Dates: start: 2015
  5. POTASSIUM CHLORIDE [Concomitant]
     Active Substance: POTASSIUM CHLORIDE
     Indication: Hypokalaemia
     Dosage: 1 DF, PRN
     Route: 048
     Dates: start: 20220422
  6. ACYCLOVIR [Concomitant]
     Active Substance: ACYCLOVIR
     Indication: Prophylaxis
     Dosage: 400 MG, BID
     Route: 048
     Dates: start: 20220325
  7. DULOXETINE [Concomitant]
     Active Substance: DULOXETINE
     Indication: Prophylaxis
     Dosage: 30 MG, QD
     Route: 048
     Dates: start: 2018
  8. ENOXAPARIN SODIUM [Concomitant]
     Active Substance: ENOXAPARIN SODIUM
     Indication: Prophylaxis
     Dosage: 0.4 ML, QD
     Route: 058
     Dates: start: 20230109, end: 20230111
  9. PENTAMIDINE ISETHIONATE [Concomitant]
     Active Substance: PENTAMIDINE ISETHIONATE
     Dosage: 300 MILLIGRAM IN 4 WEEK INHALATION USE
     Dates: start: 20220620

REACTIONS (1)
  - Perichondritis [Recovered/Resolved]

NARRATIVE: CASE EVENT DATE: 20230109
